FAERS Safety Report 25151175 (Version 4)
Quarter: 2025Q3

REPORT INFORMATION
  Report Type: Spontaneous
  Country: US (occurrence: US)
  Receive Date: 20250402
  Receipt Date: 20250911
  Transmission Date: 20251021
  Serious: No
  Sender: SANOFI AVENTIS
  Company Number: US-SA-2025SA093228

PATIENT
  Age: 73 Year
  Sex: Female

DRUGS (27)
  1. DUPIXENT [Suspect]
     Active Substance: DUPILUMAB
     Indication: Neurodermatitis
     Dosage: 300 MG, QOW
     Route: 058
     Dates: start: 20250301, end: 202503
  2. DUPIXENT [Suspect]
     Active Substance: DUPILUMAB
     Route: 058
     Dates: start: 202503
  3. ACYCLOVIR [Concomitant]
     Active Substance: ACYCLOVIR
  4. CALCIUM [Concomitant]
     Active Substance: CALCIUM
  5. COLACE CLEAR [Concomitant]
     Active Substance: DOCUSATE SODIUM
  6. DONEPEZIL [Concomitant]
     Active Substance: DONEPEZIL
  7. DULOXETINE [Concomitant]
     Active Substance: DULOXETINE
  8. FLUTICASONE [Concomitant]
     Active Substance: FLUTICASONE
  9. FOLIC ACID [Concomitant]
     Active Substance: FOLIC ACID
  10. FUROSEMIDE [Concomitant]
     Active Substance: FUROSEMIDE
  11. KLOR-CON M20 [Concomitant]
     Active Substance: POTASSIUM CHLORIDE
  12. LEVOCETIRIZINE [Concomitant]
     Active Substance: LEVOCETIRIZINE
  13. LEVOTHYROXINE [Concomitant]
     Active Substance: LEVOTHYROXINE
  14. LORATADINE [Concomitant]
     Active Substance: LORATADINE
  15. MELOXICAM [Concomitant]
     Active Substance: MELOXICAM
  16. NORCO [Concomitant]
     Active Substance: ACETAMINOPHEN\HYDROCODONE BITARTRATE
  17. OMEPRAZOLE [Concomitant]
     Active Substance: OMEPRAZOLE
  18. POMALYST [Concomitant]
     Active Substance: POMALIDOMIDE
  19. PRAVASTATIN [Concomitant]
     Active Substance: PRAVASTATIN
  20. TRAZODONE [Concomitant]
     Active Substance: TRAZODONE HYDROCHLORIDE
  21. VITAMIN B12 [Concomitant]
     Active Substance: CYANOCOBALAMIN
  22. VITAMIN D3 [Concomitant]
     Active Substance: CHOLECALCIFEROL
  23. MINERALS\VITAMINS [Concomitant]
     Active Substance: MINERALS\VITAMINS
  24. ASPIRIN [Concomitant]
     Active Substance: ASPIRIN
  25. TRIAMCINOLONE [Concomitant]
     Active Substance: TRIAMCINOLONE
  26. VITAMIN C [Concomitant]
     Active Substance: ASCORBIC ACID
  27. POMALYST [Concomitant]
     Active Substance: POMALIDOMIDE

REACTIONS (9)
  - Blood pressure decreased [Unknown]
  - Pain [Unknown]
  - Sleep disorder [Unknown]
  - Discomfort [Unknown]
  - Sleep disorder due to a general medical condition [Unknown]
  - Dizziness [Unknown]
  - Rash [Unknown]
  - Neurodermatitis [Unknown]
  - Drug ineffective [Unknown]

NARRATIVE: CASE EVENT DATE: 20250101
